FAERS Safety Report 6950747 (Version 2)
Quarter: 2014Q1

REPORT INFORMATION
  Report Type: Spontaneous
  Country: US (occurrence: None)
  Receive Date: 20090227
  Receipt Date: 20140304
  Transmission Date: 20141002
  Serious: Yes (Hospitalization, Other)
  Sender: FDA-Public Use
  Company Number: RB-2644-2008

PATIENT
  Age: 6 Day
  Sex: Female

DRUGS (6)
  1. SUBOXONE 8 MG [Suspect]
     Indication: DRUG DEPENDENCE
     Dosage: 32 MG TRANSPLACENTAL
     Route: 064
     Dates: start: 20080123, end: 20080123
  2. SUBUTEX [Suspect]
     Indication: DRUG DEPENDENCE
     Dosage: 10 MG TRANSPLACENTAL, 12 MG TRANSPLACENTAL
     Route: 064
     Dates: start: 20080124, end: 20080213
  3. LEXAPRO [Suspect]
     Indication: PRODUCT USED FOR UNKNOWN INDICATION
     Route: 064
     Dates: start: 20080319, end: 20080513
  4. CLONAZEPAM [Suspect]
     Indication: ANXIETY
     Route: 064
     Dates: start: 20080513, end: 20080701
  5. ALCOHOL [Suspect]
     Indication: PRODUCT USED FOR UNKNOWN INDICATION
     Dosage: MATERNAL USE IN EARLY PREGNANCY
     Route: 064
  6. NICOTINE (NONE) [Suspect]
     Indication: TOBACCO USER
     Route: 064

REACTIONS (2)
  - Drug withdrawal syndrome neonatal [None]
  - Foetal exposure during pregnancy [None]
